FAERS Safety Report 14287339 (Version 10)
Quarter: 2020Q4

REPORT INFORMATION
  Report Type: Report from Study
  Country: DE (occurrence: DE)
  Receive Date: 20171214
  Receipt Date: 20201127
  Transmission Date: 20210113
  Serious: Yes (Death, Hospitalization, Other)
  Sender: FDA-Public Use
  Company Number: DE-BRISTOL-MYERS SQUIBB COMPANY-BMS-2017-033939

PATIENT
  Age: 56 Year
  Sex: Male

DRUGS (1)
  1. NIVOLUMAB [Suspect]
     Active Substance: NIVOLUMAB
     Indication: NON-SMALL CELL LUNG CANCER
     Dosage: 3 MG/KG, Q2WK
     Route: 042
     Dates: start: 20161227, end: 20170602

REACTIONS (19)
  - Malignant neoplasm progression [Not Recovered/Not Resolved]
  - Adenocarcinoma [Recovered/Resolved]
  - Dyspnoea [Recovered/Resolved]
  - Cough [Recovered/Resolved]
  - Insomnia [Recovered/Resolved]
  - Lung infiltration [Recovered/Resolved]
  - Arthralgia [Recovered/Resolved]
  - Skin discolouration [Not Recovered/Not Resolved]
  - Headache [Recovered/Resolved]
  - Myocardial infarction [Fatal]
  - Constipation [Recovered/Resolved]
  - Decreased appetite [Recovered/Resolved]
  - Dysgeusia [Recovered/Resolved]
  - Alopecia [Recovered/Resolved]
  - Mucosal inflammation [Recovered/Resolved]
  - Polyneuropathy [Not Recovered/Not Resolved]
  - Nail disorder [Not Recovered/Not Resolved]
  - Vision blurred [Recovered/Resolved]
  - Respiratory disorder [Unknown]

NARRATIVE: CASE EVENT DATE: 20161227
